FAERS Safety Report 16738608 (Version 2)
Quarter: 2019Q3

REPORT INFORMATION
  Report Type: Spontaneous
  Country: MY (occurrence: MY)
  Receive Date: 20190826
  Receipt Date: 20190905
  Transmission Date: 20191005
  Serious: Yes (Other)
  Sender: FDA-Public Use
  Company Number: MY-ROCHE-2380757

PATIENT
  Age: 47 Year
  Sex: Male

DRUGS (13)
  1. RITUXIMAB. [Suspect]
     Active Substance: RITUXIMAB
     Indication: DIFFUSE LARGE B-CELL LYMPHOMA
     Route: 041
     Dates: start: 20180307, end: 20180702
  2. VINCRISTINE [Suspect]
     Active Substance: VINCRISTINE
     Indication: DIFFUSE LARGE B-CELL LYMPHOMA
     Route: 065
     Dates: start: 20180307, end: 20180702
  3. PREDNISONE. [Suspect]
     Active Substance: PREDNISONE
     Indication: DIFFUSE LARGE B-CELL LYMPHOMA
     Route: 065
     Dates: start: 20180307, end: 20180702
  4. IFOSFAMIDE. [Concomitant]
     Active Substance: IFOSFAMIDE
  5. METHYLPREDNISOLONE. [Concomitant]
     Active Substance: METHYLPREDNISOLONE
  6. CYCLOPHOSPHAMIDE. [Suspect]
     Active Substance: CYCLOPHOSPHAMIDE
     Indication: DIFFUSE LARGE B-CELL LYMPHOMA
     Route: 065
     Dates: start: 20180307, end: 20180702
  7. DEXAMETHASONE. [Concomitant]
     Active Substance: DEXAMETHASONE
  8. CYTARABINE. [Concomitant]
     Active Substance: CYTARABINE
  9. ETOPOSIDE. [Concomitant]
     Active Substance: ETOPOSIDE
  10. VP-16 [Concomitant]
     Active Substance: ETOPOSIDE
  11. DOXORUBICIN [Suspect]
     Active Substance: DOXORUBICIN
     Indication: DIFFUSE LARGE B-CELL LYMPHOMA
     Route: 065
     Dates: start: 20180307, end: 20180702
  12. METHOTREXATE. [Concomitant]
     Active Substance: METHOTREXATE
  13. CISPLATIN. [Concomitant]
     Active Substance: CISPLATIN

REACTIONS (1)
  - Diffuse large B-cell lymphoma refractory [Unknown]
